FAERS Safety Report 4632628-8 (Version None)
Quarter: 2005Q2

REPORT INFORMATION
  Report Type: 
  Country: None (occurrence: None)
  Receive Date: 20050331
  Receipt Date: 20040813
  Transmission Date: 20051028
  Serious: Yes (Other)
  Sender: FDA-Public Use
  Company Number: 200414002BCC

PATIENT
  Age: 33 Year
  Sex: Male
  Weight: 88.4514 kg

DRUGS (4)
  1. ALEVE [Suspect]
     Indication: INFLAMMATION
     Dosage: 660 MG, QD, ORAL; 220 MG, BID, ORAL
     Route: 048
     Dates: start: 20040717, end: 20040718
  2. ALEVE [Suspect]
     Indication: LIMB INJURY
     Dosage: 660 MG, QD, ORAL; 220 MG, BID, ORAL
     Route: 048
     Dates: start: 20040717, end: 20040718
  3. ALEVE [Suspect]
     Indication: INFLAMMATION
     Dosage: 660 MG, QD, ORAL; 220 MG, BID, ORAL
     Route: 048
     Dates: start: 20040719, end: 20040806
  4. ALEVE [Suspect]
     Indication: LIMB INJURY
     Dosage: 660 MG, QD, ORAL; 220 MG, BID, ORAL
     Route: 048
     Dates: start: 20040719, end: 20040806

REACTIONS (1)
  - HAEMATOCHEZIA [None]
